FAERS Safety Report 7734458-7 (Version None)
Quarter: 2011Q3

REPORT INFORMATION
  Report Type: 
  Country: None (occurrence: None)
  Receive Date: 20110907
  Receipt Date: 20110731
  Transmission Date: 20111222
  Serious: No
  Sender: FDA-Public Use
  Company Number: US-BAYER-2011-070930

PATIENT

DRUGS (3)
  1. ALEVE (CAPLET) [Suspect]
     Dosage: 3 DF, QD
     Route: 048
     Dates: start: 20110731
  2. ANTIBIOTICS [Concomitant]
     Dosage: 2 DF, QD
     Route: 048
  3. BENADRYL NOS [Concomitant]
     Dosage: UNK
     Route: 048
     Dates: start: 20110731

REACTIONS (1)
  - NO ADVERSE EVENT [None]
